FAERS Safety Report 7123833-X (Version None)
Quarter: 2010Q4

REPORT INFORMATION
  Report Type: 
  Country: None (occurrence: None)
  Receive Date: 20101125
  Receipt Date: 20101119
  Transmission Date: 20110411
  Serious: Yes (Death)
  Sender: FDA-Public Use
  Company Number: PHHY2010CA61496

PATIENT
  Sex: Female

DRUGS (9)
  1. ACLASTA [Suspect]
     Indication: OSTEOPOROSIS
     Dosage: 5 MG
     Route: 042
     Dates: start: 20091203
  2. CALCIUM [Concomitant]
     Dosage: 1200 MG
  3. VITAMIN D [Concomitant]
     Dosage: 800 IU PER DAY
  4. ACTONEL [Concomitant]
     Dosage: 35 MG
  5. LEVOTHYROXINE SODIUM [Concomitant]
     Dosage: 0.125 MG
  6. MICARDIS [Concomitant]
     Dosage: 40 MG
  7. ALTACE [Concomitant]
     Dosage: 2.5 MG
  8. LASIX [Concomitant]
     Dosage: 20 MG
  9. ASA [Concomitant]
     Dosage: 81 MG

REACTIONS (1)
  - PNEUMONIA VIRAL [None]
